FAERS Safety Report 12220314 (Version 1)
Quarter: 2016Q1

REPORT INFORMATION
  Report Type: Report from Study
  Country: ES (occurrence: ES)
  Receive Date: 20160330
  Receipt Date: 20160330
  Transmission Date: 20160526
  Serious: Yes (Other)
  Sender: FDA-Public Use
  Company Number: ES-ACCORD-039103

PATIENT
  Sex: Female

DRUGS (1)
  1. METHOTREXATE [Suspect]
     Active Substance: METHOTREXATE
     Indication: MEDULLOBLASTOMA
     Dosage: ALSO RECEIVED 6 INTRAVENTRICULAR  METHOTREXATE INJECTIONS 2 MG
     Route: 042

REACTIONS (4)
  - Hyperreflexia [Recovered/Resolved]
  - Leukoencephalopathy [Recovered/Resolved]
  - Ataxia [Recovered/Resolved]
  - Dizziness [Recovered/Resolved]
